FAERS Safety Report 20610731 (Version 1)
Quarter: 2022Q1

REPORT INFORMATION
  Report Type: Spontaneous
  Country: US (occurrence: None)
  Receive Date: 20220317
  Receipt Date: 20220317
  Transmission Date: 20220423
  Serious: Yes (Other)
  Sender: FDA-Public Use
  Company Number: None

PATIENT
  Age: 70 Year
  Sex: Female

DRUGS (5)
  1. GAMUNEX [Suspect]
     Active Substance: HUMAN IMMUNOGLOBULIN G
     Indication: Chronic inflammatory demyelinating polyradiculoneuropathy
     Dosage: FREQUENCY : DAILY;?
     Route: 042
     Dates: start: 20220301, end: 20220301
  2. GAMUNEX [Suspect]
     Active Substance: HUMAN IMMUNOGLOBULIN G
     Indication: Chronic inflammatory demyelinating polyradiculoneuropathy
     Dosage: FREQUENCY : DAILY;?
     Route: 042
     Dates: start: 20220301, end: 20220301
  3. Diphenhydramine 25 po [Concomitant]
     Dates: start: 20220301
  4. acetaminophen 325 po [Concomitant]
     Dates: start: 20220301
  5. 0.9 % NaCL 1000ml IV [Concomitant]
     Dates: start: 20220301

REACTIONS (6)
  - Headache [None]
  - Infusion related reaction [None]
  - Fatigue [None]
  - Nausea [None]
  - Back pain [None]
  - Vision blurred [None]

NARRATIVE: CASE EVENT DATE: 20220301
